FAERS Safety Report 14203620 (Version 1)
Quarter: 2017Q4

REPORT INFORMATION
  Report Type: Other
  Country: IT (occurrence: IT)
  Receive Date: 20171120
  Receipt Date: 20171120
  Transmission Date: 20180321
  Serious: Yes (Other)
  Sender: FDA-Public Use
  Company Number: IT-AJANTA PHARMA USA INC.-2034630

PATIENT

DRUGS (1)
  1. OLANZAPINE (ANDA 204320) [Suspect]
     Active Substance: OLANZAPINE
     Indication: PSYCHOTIC DISORDER

REACTIONS (1)
  - Post-injection delirium sedation syndrome [Unknown]
